FAERS Safety Report 16242308 (Version 1)
Quarter: 2019Q2

REPORT INFORMATION
  Report Type: Spontaneous
  Country: FR (occurrence: FR)
  Receive Date: 20190426
  Receipt Date: 20190426
  Transmission Date: 20190711
  Serious: Yes (Hospitalization)
  Sender: FDA-Public Use
  Company Number: FR-ZYDUS-036015

PATIENT
  Age: 75 Year
  Sex: Male
  Weight: 83 kg

DRUGS (7)
  1. AMIKACIN. [Concomitant]
     Active Substance: AMIKACIN
     Indication: ANTIBIOTIC THERAPY
     Route: 041
     Dates: start: 20190206, end: 20190212
  2. ACICLOVIR [Suspect]
     Active Substance: ACYCLOVIR
     Indication: MENINGOENCEPHALITIS HERPETIC
     Route: 041
     Dates: start: 20190114, end: 201902
  3. VANCOMYCIN [Suspect]
     Active Substance: VANCOMYCIN
     Indication: ANTIBIOTIC THERAPY
     Route: 041
     Dates: start: 20190206, end: 20190212
  4. MEROPENEM. [Concomitant]
     Active Substance: MEROPENEM
     Indication: ANTIBIOTIC THERAPY
     Route: 041
     Dates: start: 20190206, end: 20190212
  5. ARSENIC [Concomitant]
     Active Substance: ARSENIC
     Indication: ACUTE MYELOID LEUKAEMIA
     Route: 041
     Dates: start: 20190102, end: 20190206
  6. TRETINOIN. [Concomitant]
     Active Substance: TRETINOIN
     Indication: ACUTE MYELOID LEUKAEMIA
     Route: 048
     Dates: start: 20190102, end: 20190206
  7. ACICLOVIR [Suspect]
     Active Substance: ACYCLOVIR
     Indication: RASH VESICULAR
     Route: 048
     Dates: start: 20190218, end: 20190225

REACTIONS (1)
  - Drug reaction with eosinophilia and systemic symptoms [Not Recovered/Not Resolved]

NARRATIVE: CASE EVENT DATE: 20190211
